FAERS Safety Report 21962085 (Version 2)
Quarter: 2023Q1

REPORT INFORMATION
  Report Type: Report from Study
  Country: TR (occurrence: TR)
  Receive Date: 20230207
  Receipt Date: 20230223
  Transmission Date: 20230417
  Serious: Yes (Hospitalization, Other)
  Sender: FDA-Public Use
  Company Number: TR-ABBVIE-4294596

PATIENT
  Age: 76 Year
  Sex: Male
  Weight: 90 kg

DRUGS (6)
  1. CARBIDOPA\LEVODOPA [Suspect]
     Active Substance: CARBIDOPA\LEVODOPA
     Indication: Parkinson^s disease
     Dosage: MORNING DOSE (ML): 4.00 CONTINUOUS DOSE(ML): 1.30 EXTRA DOSE (ML): 0.50
     Route: 050
     Dates: start: 20230130, end: 20230203
  2. CARBIDOPA\LEVODOPA [Suspect]
     Active Substance: CARBIDOPA\LEVODOPA
     Dosage: MORNING DOSE (ML): 4.00 CONTINUOUS DOSE (ML): 2.00 EXTRA DOSE (ML): 0.50
     Route: 050
     Dates: start: 20230203
  3. PEXA XR [Concomitant]
     Indication: Parkinson^s disease
     Dosage: 0.375 MG
     Route: 048
  4. EXELON [Concomitant]
     Active Substance: RIVASTIGMINE TARTRATE
     Indication: Parkinson^s disease
     Dosage: 10 CM
     Route: 062
     Dates: start: 2019
  5. BENSERAZIDE HYDROCHLORIDE\LEVODOPA [Concomitant]
     Active Substance: BENSERAZIDE HYDROCHLORIDE\LEVODOPA
     Indication: Parkinson^s disease
     Dosage: 125 MILLIGRAM?LEVODOPA+BENSERAZIDE (MADOPAR HBS)
     Route: 048
     Dates: start: 2018
  6. COLCHICINE [Concomitant]
     Active Substance: COLCHICINE
     Indication: Goitre
     Dosage: 0.5 MILLIGRAM
     Route: 048
     Dates: start: 2021

REACTIONS (4)
  - Infection [Recovered/Resolved]
  - Vomiting [Recovered/Resolved]
  - Nausea [Recovered/Resolved]
  - Device dislocation [Recovered/Resolved]

NARRATIVE: CASE EVENT DATE: 20230201
